FAERS Safety Report 20363492 (Version 1)
Quarter: 2022Q1

REPORT INFORMATION
  Report Type: Spontaneous
  Country: US (occurrence: US)
  Receive Date: 20220121
  Receipt Date: 20220121
  Transmission Date: 20220423
  Serious: Yes (Hospitalization)
  Sender: FDA-Public Use
  Company Number: US-GW PHARMA-202201USGW00210

PATIENT

DRUGS (1)
  1. EPIDIOLEX [Suspect]
     Active Substance: CANNABIDIOL
     Indication: Seizure
     Dosage: 290 MILLIGRAM, BID (FIRST SHIPPED ON 16 JUN 2020)
     Route: 048
     Dates: start: 202006

REACTIONS (2)
  - Failure to thrive [Unknown]
  - Malnutrition [Unknown]

NARRATIVE: CASE EVENT DATE: 20211208
